FAERS Safety Report 25215563 (Version 1)
Quarter: 2025Q2

REPORT INFORMATION
  Report Type: Spontaneous
  Country: US (occurrence: US)
  Receive Date: 20250418
  Receipt Date: 20250418
  Transmission Date: 20250717
  Serious: No
  Sender: Phathom Pharmaceuticals
  Company Number: US-PHATHOM PHARMACEUTICALS INC.-2025PHT00406

PATIENT
  Sex: Female
  Weight: 90.718 kg

DRUGS (2)
  1. VOQUEZNA [Suspect]
     Active Substance: VONOPRAZAN FUMARATE
     Route: 048
     Dates: start: 2024, end: 202502
  2. UNSPECIFIED ANTIRETROVIRAL [Concomitant]
     Indication: Herpes zoster

REACTIONS (4)
  - Blood testosterone increased [Recovering/Resolving]
  - Hair growth abnormal [Recovered/Resolved]
  - Abdominal pain upper [Recovering/Resolving]
  - Product dose omission issue [Recovered/Resolved]
